FAERS Safety Report 6980375-X (Version None)
Quarter: 2010Q3

REPORT INFORMATION
  Report Type: 
  Country: None (occurrence: None)
  Receive Date: 20100914
  Receipt Date: 20091118
  Transmission Date: 20110219
  Serious: No
  Sender: FDA-Public Use
  Company Number: US-ABBOTT-09P-163-0610105-00

PATIENT
  Age: 16 Year
  Sex: Female

DRUGS (2)
  1. DEPAKOTE [Suspect]
     Indication: CONVULSION
     Dates: start: 19990101, end: 20080101
  2. DEPAKOTE [Suspect]
     Dates: start: 20080101

REACTIONS (2)
  - ALOPECIA [None]
  - CONVULSION [None]
